FAERS Safety Report 6397596-X (Version None)
Quarter: 2009Q4

REPORT INFORMATION
  Report Type: 
  Country: None (occurrence: None)
  Receive Date: 20091012
  Receipt Date: 20091007
  Transmission Date: 20100525
  Serious: Yes (Death, Hospitalization, Other)
  Sender: FDA-Public Use
  Company Number: GB-BAYER-200932553GPV

PATIENT
  Age: 61 Year
  Sex: Female

DRUGS (7)
  1. ASPIRIN [Interacting]
     Indication: ANGINA PECTORIS
     Route: 065
     Dates: start: 20090410
  2. BIVALIRUDIN [Suspect]
     Indication: ANGINA PECTORIS
     Route: 040
     Dates: start: 20090410, end: 20090410
  3. CLOPIDOGREL [Interacting]
     Indication: ANGIOPLASTY
     Route: 040
     Dates: start: 20090409, end: 20090409
  4. CLOPIDOGREL [Interacting]
     Route: 048
     Dates: start: 20090410, end: 20090410
  5. HEPARIN SODIUM [Interacting]
     Indication: ANGIOPLASTY
     Dosage: 1/ TOTAL
     Route: 065
     Dates: start: 20090410, end: 20090410
  6. REOPRO [Suspect]
     Indication: ANGINA PECTORIS
     Route: 065
     Dates: start: 20090410
  7. BETA BLOCKERS (NOS) [Concomitant]
     Indication: DRUG USE FOR UNKNOWN INDICATION

REACTIONS (6)
  - CORONARY ARTERY THROMBOSIS [None]
  - DRUG INEFFECTIVE [None]
  - DRUG INTERACTION [None]
  - OVERDOSE [None]
  - PUNCTURE SITE HAEMORRHAGE [None]
  - SUBDURAL HAEMORRHAGE [None]
